FAERS Safety Report 7672275-7 (Version None)
Quarter: 2011Q3

REPORT INFORMATION
  Report Type: 
  Country: None (occurrence: None)
  Receive Date: 20110809
  Receipt Date: 20110728
  Transmission Date: 20111222
  Serious: Yes (Hospitalization, Other)
  Sender: FDA-Public Use
  Company Number: IT-BAYER-2010-007806

PATIENT
  Age: 77 Year
  Sex: Female
  Weight: 64 kg

DRUGS (10)
  1. SORAFENIB (RAF KINASE INHIBITOR) [Suspect]
     Dosage: 200 MG, BID
     Route: 048
     Dates: start: 20110120
  2. SORAFENIB (RAF KINASE INHIBITOR) [Suspect]
     Dosage: 200 MG, BID
     Route: 048
     Dates: start: 20110526
  3. METFORMIN HCL [Concomitant]
     Indication: TYPE 2 DIABETES MELLITUS
     Dosage: 1500 MG, QD
     Route: 048
     Dates: start: 20060101
  4. LEVOTHYROXINE SODIUM [Concomitant]
     Indication: HYPOTHYROIDISM
     Dosage: 112.5 MCG/24HR, QD
     Route: 048
     Dates: start: 20090109, end: 20110109
  5. LEVOTHYROXINE SODIUM [Concomitant]
     Dosage: 152 MG, QD
     Route: 048
     Dates: start: 20110122
  6. AMLODIPINE [Concomitant]
     Indication: HYPERTENSION
     Dosage: 10 MG, QD
     Route: 048
     Dates: start: 19700101
  7. SORAFENIB (RAF KINASE INHIBITOR) [Suspect]
     Indication: THYROID CANCER
     Dosage: 400 MG, BID
     Route: 048
     Dates: start: 20101214, end: 20101219
  8. SORAFENIB (RAF KINASE INHIBITOR) [Suspect]
     Dosage: 400 MG AT 10:00 AM AND 200 MG AT 20 PM
     Route: 048
     Dates: start: 20101231, end: 20110110
  9. CARVEDILOL [Concomitant]
     Indication: HYPERTENSION
     Dosage: 25 MG, QD
     Route: 048
     Dates: start: 19700101
  10. CODEINE SULFATE [Concomitant]
     Indication: MUSCULOSKELETAL PAIN
     Dosage: 30 MG, PRN
     Route: 048
     Dates: start: 20090701

REACTIONS (2)
  - HYPOCALCAEMIA [None]
  - STOMATITIS [None]
